FAERS Safety Report 13534364 (Version 1)
Quarter: 2017Q2

REPORT INFORMATION
  Report Type: Spontaneous
  Country: DE (occurrence: DE)
  Receive Date: 20170510
  Receipt Date: 20170510
  Transmission Date: 20170830
  Serious: Yes (Hospitalization)
  Sender: FDA-Public Use
  Company Number: PHHY2017DE039094

PATIENT
  Sex: Female

DRUGS (2)
  1. TEGRETAL [Suspect]
     Active Substance: CARBAMAZEPINE
     Indication: EPILEPSY
     Dosage: 1200 MG, QD
     Route: 065
  2. TEGRETAL [Suspect]
     Active Substance: CARBAMAZEPINE
     Dosage: 1600 MG, QD
     Route: 065

REACTIONS (3)
  - Product packaging quantity issue [Unknown]
  - Fear [Unknown]
  - Affect lability [Recovered/Resolved]
